FAERS Safety Report 6254649-4 (Version None)
Quarter: 2009Q3

REPORT INFORMATION
  Report Type: 
  Country: None (occurrence: None)
  Receive Date: 20090702
  Receipt Date: 20090629
  Transmission Date: 20100115
  Serious: Yes (Hospitalization)
  Sender: FDA-Public Use
  Company Number: B0579804A

PATIENT
  Sex: Female
  Weight: 52 kg

DRUGS (6)
  1. ELTROMBOPAG [Suspect]
     Indication: IDIOPATHIC THROMBOCYTOPENIC PURPURA
     Dosage: 25MG PER DAY
     Route: 048
     Dates: start: 20090603
  2. BLOPRESS [Concomitant]
     Indication: HYPERTENSION
     Dosage: 16MG PER DAY
     Route: 048
  3. RILMENIDINE [Concomitant]
     Indication: HYPERTENSION
     Dosage: 1MG PER DAY
     Route: 048
  4. DOXAZOSIN MESILATE [Concomitant]
     Indication: HYPERTENSION
     Dosage: 8MG PER DAY
     Route: 048
  5. SELOKEN RETARD [Concomitant]
     Dosage: 1TAB PER DAY
     Route: 048
  6. PREDNISOLONE [Concomitant]
     Indication: IDIOPATHIC THROMBOCYTOPENIC PURPURA
     Dosage: 6.25MG PER DAY
     Route: 048

REACTIONS (4)
  - BLISTER [None]
  - DEEP VEIN THROMBOSIS [None]
  - LIVIDITY [None]
  - OEDEMA PERIPHERAL [None]
